FAERS Safety Report 8778983 (Version 1)
Quarter: 2012Q4

REPORT INFORMATION
  Report Type: 
  Country: US (occurrence: US)
  Receive Date: 20120912
  Receipt Date: 20120912
  Transmission Date: 20130627
  Serious: Yes (Other)
  Sender: FDA-Public Use
  Company Number: US-PFIZER INC-2012223193

PATIENT
  Age: 29 Year
  Sex: Female
  Weight: 89.8 kg

DRUGS (4)
  1. DILANTIN [Suspect]
     Indication: GRAND MAL CONVULSION
     Dosage: UNK
  2. DILANTIN [Suspect]
     Indication: EPILEPSY
  3. DILANTIN [Suspect]
     Indication: GRAND MAL CONVULSION
     Dosage: 3 capsules 100mg each in morning and 2 capsules 100mg each at night
     Route: 048
  4. DILANTIN [Suspect]
     Indication: EPILEPSY

REACTIONS (2)
  - Fibromyalgia [Not Recovered/Not Resolved]
  - Myalgia [Not Recovered/Not Resolved]
